FAERS Safety Report 17025390 (Version 1)
Quarter: 2019Q4

REPORT INFORMATION
  Report Type: Spontaneous
  Country: SG (occurrence: SG)
  Receive Date: 20191113
  Receipt Date: 20191113
  Transmission Date: 20200122
  Serious: Yes (Life-Threatening, Hospitalization)
  Sender: FDA-Public Use
  Company Number: SG-MYLANLABS-2019M1108803

PATIENT
  Age: 44 Year
  Sex: Male

DRUGS (6)
  1. LUGOLS IODINE [Concomitant]
     Active Substance: IODINE\POTASSIUM IODIDE
     Indication: PRODUCT USED FOR UNKNOWN INDICATION
     Dosage: (130 MG/ML) 10 DROPS
     Route: 065
  2. EPINEPHRINE. [Suspect]
     Active Substance: EPINEPHRINE
     Indication: CIRCULATORY COLLAPSE
     Dosage: UNK
     Route: 042
  3. CARBIMAZOLE [Concomitant]
     Active Substance: CARBIMAZOLE
     Indication: THYROTOXIC CRISIS
     Dosage: 30 MILLIGRAM
     Route: 065
  4. NORADRENALINE                      /00127501/ [Suspect]
     Active Substance: NOREPINEPHRINE
     Indication: CIRCULATORY COLLAPSE
     Dosage: UNK
     Route: 042
  5. DIGOXIN. [Concomitant]
     Active Substance: DIGOXIN
     Indication: ATRIAL FIBRILLATION
     Dosage: 500 MICROGRAM
     Route: 042
  6. DIGOXIN. [Concomitant]
     Active Substance: DIGOXIN
     Indication: CARDIAC FAILURE CONGESTIVE

REACTIONS (1)
  - Drug ineffective [Unknown]
